FAERS Safety Report 4902343-1 (Version None)
Quarter: 2006Q1

REPORT INFORMATION
  Report Type: 
  Country: None (occurrence: None)
  Receive Date: 20060207
  Receipt Date: 20050825
  Transmission Date: 20060701
  Serious: Yes (Life-Threatening, Hospitalization)
  Sender: FDA-Public Use
  Company Number: TR-NOVOPROD-246565

PATIENT
  Age: 44 Year
  Sex: Female
  Weight: 97 kg

DRUGS (5)
  1. DIOVAN HCT [Concomitant]
     Dates: start: 20050221, end: 20050824
  2. LEVEMIR [Suspect]
     Indication: INSULIN-REQUIRING TYPE II DIABETES MELLITUS
     Dosage: 24 IU, QD
     Route: 058
     Dates: start: 20050525
  3. AMARYL [Concomitant]
     Dates: start: 20000101, end: 20050824
  4. GLUCOBAY [Concomitant]
     Dates: start: 20000101, end: 20050824
  5. ATORVASTATIN CALCIUM [Concomitant]

REACTIONS (3)
  - CORONARY ARTERY DISEASE [None]
  - GLYCOSYLATED HAEMOGLOBIN INCREASED [None]
  - MYOCARDIAL INFARCTION [None]
